FAERS Safety Report 7184167-0 (Version None)
Quarter: 2010Q4

REPORT INFORMATION
  Report Type: 
  Country: None (occurrence: None)
  Receive Date: 20101222
  Receipt Date: 20101213
  Transmission Date: 20110411
  Serious: Yes (Other)
  Sender: FDA-Public Use
  Company Number: US-ABBOTT-10P-163-0691286-00

PATIENT
  Sex: Female
  Weight: 99.88 kg

DRUGS (1)
  1. LUPRON DEPOT [Suspect]
     Indication: ENDOMETRIOSIS
     Dates: start: 20100901

REACTIONS (7)
  - ARTHRALGIA [None]
  - FALL [None]
  - HOT FLUSH [None]
  - NIGHT SWEATS [None]
  - PAIN [None]
  - RIB FRACTURE [None]
  - SURGICAL FAILURE [None]
